FAERS Safety Report 8869841 (Version 1)
Quarter: 2012Q4

REPORT INFORMATION
  Report Type: 
  Country: US (occurrence: US)
  Receive Date: 20121023
  Receipt Date: 20121023
  Transmission Date: 20130627
  Serious: No
  Sender: FDA-Public Use
  Company Number: US-AMGEN-USASP2011063983

PATIENT
  Age: 25 Year
  Sex: Female
  Weight: 71.66 kg

DRUGS (3)
  1. ENBREL [Suspect]
     Indication: RHEUMATOID ARTHRITIS
     Dosage: 50 mg, qwk
     Route: 058
     Dates: start: 20040101, end: 201110
  2. NEXA [Concomitant]
     Indication: PRENATAL CARE
     Dosage: UNK UNK, qd
     Route: 048
     Dates: start: 201104
  3. SYNTHROID [Concomitant]
     Indication: HYPERTHYROIDISM
     Dosage: 112 mug, qd
     Route: 048

REACTIONS (6)
  - Premature labour [Not Recovered/Not Resolved]
  - Pain in extremity [Recovered/Resolved]
  - Abdominal pain [Not Recovered/Not Resolved]
  - Back pain [Recovered/Resolved]
  - Arthralgia [Not Recovered/Not Resolved]
  - Condition aggravated [Unknown]
